FAERS Safety Report 14630217 (Version 1)
Quarter: 2018Q1

REPORT INFORMATION
  Report Type: Spontaneous
  Country: DE (occurrence: DE)
  Receive Date: 20180313
  Receipt Date: 20180313
  Transmission Date: 20180509
  Serious: Yes (Hospitalization, Other)
  Sender: FDA-Public Use
  Company Number: PHHY2015DE177634

PATIENT
  Age: 64 Year
  Sex: Female
  Weight: 105 kg

DRUGS (23)
  1. PANTOPRAZOL [Concomitant]
     Active Substance: PANTOPRAZOLE SODIUM
     Indication: ABDOMINAL PAIN UPPER
     Dosage: 40 MG, UNK
     Route: 048
     Dates: start: 20000101
  2. HERCEPTIN [Suspect]
     Active Substance: TRASTUZUMAB
     Dosage: 600 MG, UNK
     Route: 042
     Dates: start: 20151028, end: 20151216
  3. HERCEPTIN [Suspect]
     Active Substance: TRASTUZUMAB
     Dosage: 450 MG, UNK
     Route: 042
     Dates: start: 20161128, end: 20161219
  4. ALOXI [Concomitant]
     Active Substance: PALONOSETRON HYDROCHLORIDE
     Indication: NAUSEA
     Dosage: 500 UG, UNK
     Route: 048
  5. HERCEPTIN [Suspect]
     Active Substance: TRASTUZUMAB
     Dosage: 534 MG, UNK
     Route: 042
     Dates: start: 20160229, end: 20160523
  6. SULFASALAZINE DELAYED-RELEASE [Concomitant]
     Active Substance: SULFASALAZINE
     Indication: ARTHROPATHY
     Dosage: 1000 MG, UNK
     Route: 048
     Dates: start: 20000701
  7. DOCETAXEL. [Suspect]
     Active Substance: DOCETAXEL
     Indication: PRODUCT USED FOR UNKNOWN INDICATION
     Dosage: 150 MG, UNK
     Route: 042
     Dates: start: 20150916, end: 20151028
  8. HERCEPTIN [Suspect]
     Active Substance: TRASTUZUMAB
     Dosage: 630 MG, UNK
     Route: 042
     Dates: start: 20151007, end: 20151007
  9. HERCEPTIN [Suspect]
     Active Substance: TRASTUZUMAB
     Dosage: 690 MG, UNK
     Route: 042
     Dates: start: 20160208, end: 20160208
  10. HERCEPTIN [Suspect]
     Active Substance: TRASTUZUMAB
     Dosage: 468 MG, UNK
     Route: 042
     Dates: start: 20161107, end: 20161107
  11. PERTUZUMAB. [Suspect]
     Active Substance: PERTUZUMAB
     Indication: HER-2 POSITIVE BREAST CANCER
     Dosage: 840 MG, UNK
     Route: 042
     Dates: start: 20150916, end: 20150916
  12. AMITRIPTYLIN [Concomitant]
     Active Substance: AMITRIPTYLINE
     Indication: ARTHROPATHY
     Dosage: 25 MG, UNK
     Route: 048
     Dates: start: 20000701
  13. HERCEPTIN [Suspect]
     Active Substance: TRASTUZUMAB
     Indication: HER-2 POSITIVE BREAST CANCER
     Dosage: 840 MG, UNK
     Route: 042
     Dates: start: 20150916, end: 20150916
  14. HERCEPTIN [Suspect]
     Active Substance: TRASTUZUMAB
     Dosage: 468 MG, UNK
     Route: 042
     Dates: start: 20160613, end: 20160815
  15. HERCEPTIN [Suspect]
     Active Substance: TRASTUZUMAB
     Dosage: 450 MG, UNK
     Route: 042
     Dates: start: 20160926, end: 20161017
  16. BISOPROLOL [Concomitant]
     Active Substance: BISOPROLOL
     Indication: HYPERTENSION
     Dosage: 5 MG, UNK
     Route: 048
     Dates: start: 20050701
  17. DEXAMETHASON [Concomitant]
     Active Substance: DEXAMETHASONE
     Indication: NAUSEA
     Dosage: 20 MG, UNK
     Route: 042
  18. HERCEPTIN [Suspect]
     Active Substance: TRASTUZUMAB
     Dosage: 660 MG, UNK
     Route: 042
     Dates: start: 20160113, end: 20160113
  19. HERCEPTIN [Suspect]
     Active Substance: TRASTUZUMAB
     Dosage: 448 MG, UNK
     Route: 042
     Dates: start: 20160905, end: 20160905
  20. HERCEPTIN [Suspect]
     Active Substance: TRASTUZUMAB
     Dosage: 1 OT, UNK
     Route: 042
  21. DOCETAXEL. [Suspect]
     Active Substance: DOCETAXEL
     Dosage: 112.5 MG, UNK
     Route: 042
     Dates: start: 20151125
  22. PERTUZUMAB. [Suspect]
     Active Substance: PERTUZUMAB
     Dosage: 420 MG, UNK
     Route: 042
     Dates: start: 20151007
  23. METHOTREXATE. [Concomitant]
     Active Substance: METHOTREXATE
     Indication: ARTHROPATHY
     Dosage: 15 MG, UNK
     Route: 065
     Dates: start: 20000701

REACTIONS (12)
  - Nail disorder [Not Recovered/Not Resolved]
  - Weight decreased [Recovered/Resolved]
  - Decreased appetite [Recovered/Resolved]
  - Dyspnoea [Not Recovered/Not Resolved]
  - Actinic keratosis [Recovered/Resolved]
  - Peripheral sensory neuropathy [Not Recovered/Not Resolved]
  - Alopecia [Recovered/Resolved]
  - Pyrexia [Recovered/Resolved]
  - Nausea [Recovered/Resolved]
  - Intestinal haemorrhage [Recovered/Resolved]
  - Constipation [Recovered/Resolved]
  - Ascites [Recovered/Resolved]

NARRATIVE: CASE EVENT DATE: 20150916
